FAERS Safety Report 18388840 (Version 1)
Quarter: 2020Q4

REPORT INFORMATION
  Report Type: Spontaneous
  Country: GB (occurrence: GB)
  Receive Date: 20201016
  Receipt Date: 20201016
  Transmission Date: 20210114
  Serious: Yes (Life-Threatening, Disabling, Other)
  Sender: FDA-Public Use
  Company Number: GB-009507513-2010GBR003516

PATIENT
  Age: 24 Year
  Sex: Male
  Weight: 80 kg

DRUGS (1)
  1. FINASTERIDE. [Suspect]
     Active Substance: FINASTERIDE
     Indication: ALOPECIA
     Dosage: 1 MILLIGRAM
     Route: 048
     Dates: start: 20180101, end: 20181201

REACTIONS (14)
  - Pyrexia [Recovered/Resolved]
  - Pollakiuria [Recovered/Resolved]
  - Headache [Recovering/Resolving]
  - Gastrointestinal disorder [Recovering/Resolving]
  - Testicular pain [Recovered/Resolved]
  - Penis disorder [Not Recovered/Not Resolved]
  - Insomnia [Recovering/Resolving]
  - Erectile dysfunction [Not Recovered/Not Resolved]
  - Muscle twitching [Recovered/Resolved]
  - Arthralgia [Recovered/Resolved]
  - Organic erectile dysfunction [Not Recovered/Not Resolved]
  - Genital hypoaesthesia [Not Recovered/Not Resolved]
  - Tinnitus [Recovered/Resolved]
  - Amnesia [Not Recovered/Not Resolved]

NARRATIVE: CASE EVENT DATE: 20190101
